FAERS Safety Report 7497521-4 (Version None)
Quarter: 2011Q2

REPORT INFORMATION
  Report Type: 
  Country: None (occurrence: None)
  Receive Date: 20110523
  Receipt Date: 20110506
  Transmission Date: 20111010
  Serious: No
  Sender: FDA-Public Use
  Company Number: US-B.I. PHARMACEUTICALS,INC./RIDGEFIELD-2011-BP-12563BP

PATIENT
  Age: 67 Year
  Sex: Male

DRUGS (4)
  1. PLAVIX [Concomitant]
  2. PRADAXA [Suspect]
     Indication: PULMONARY EMBOLISM
     Route: 048
     Dates: start: 20110301
  3. IMDUR [Concomitant]
  4. METOPROLOL SUCCINATE [Concomitant]

REACTIONS (2)
  - HAEMOPTYSIS [None]
  - DYSPNOEA [None]
